FAERS Safety Report 7712162-9 (Version None)
Quarter: 2011Q3

REPORT INFORMATION
  Report Type: 
  Country: None (occurrence: None)
  Receive Date: 20110826
  Receipt Date: 20110824
  Transmission Date: 20111222
  Serious: Yes (Other)
  Sender: FDA-Public Use
  Company Number: US-PFIZER INC-2011197004

PATIENT
  Sex: Male
  Weight: 109 kg

DRUGS (5)
  1. TAMSULOSIN [Concomitant]
     Dosage: UNK
  2. LISINOPRIL [Concomitant]
     Dosage: UNK
  3. MULTI-VITAMINS [Concomitant]
     Dosage: UNK
  4. CHAPSTICK LIP BALM [Suspect]
     Indication: LIP DRY
     Dosage: UNK
     Dates: start: 19600101
  5. PRAVASTATIN [Concomitant]
     Dosage: UNK

REACTIONS (2)
  - HIP SURGERY [None]
  - STENT PLACEMENT [None]
